FAERS Safety Report 7761253-5 (Version None)
Quarter: 2011Q3

REPORT INFORMATION
  Report Type: 
  Country: None (occurrence: None)
  Receive Date: 20110920
  Receipt Date: 20110908
  Transmission Date: 20111222
  Serious: Yes (Hospitalization, Other)
  Sender: FDA-Public Use
  Company Number: JP-NAPPMUNDI-MAG-2011-0001575

PATIENT
  Sex: Female

DRUGS (13)
  1. OXYCODONE HCL [Suspect]
     Indication: CANCER PAIN
     Dosage: 40 MG, DAILY
     Route: 048
     Dates: start: 20110210, end: 20110225
  2. PIRFENIDONE [Suspect]
     Indication: PRODUCT USED FOR UNKNOWN INDICATION
  3. FLURBIPROFEN [Concomitant]
     Indication: CANCER PAIN
     Dosage: UNK
     Route: 065
     Dates: start: 20110309, end: 20110311
  4. ELIETEN                            /00041901/ [Concomitant]
     Indication: NAUSEA
     Dosage: UNK
     Route: 048
     Dates: start: 20110218, end: 20110225
  5. DUROTEP [Concomitant]
     Indication: CANCER PAIN
     Dosage: 4.2 MG, DAILY
     Route: 062
     Dates: start: 20110309
  6. FENTANYL [Concomitant]
     Indication: CANCER PAIN
     Dosage: UNK
     Route: 065
     Dates: start: 20110309
  7. OXYCODONE HCL [Suspect]
     Indication: CANCER PAIN
     Dosage: 5 MG, DAILY
     Route: 048
     Dates: start: 20110210, end: 20110309
  8. TETRAMIDE [Concomitant]
     Indication: DELIRIUM
     Dosage: UNK
     Route: 048
     Dates: start: 20110224
  9. RISPERDAL [Concomitant]
     Indication: DELIRIUM
     Dosage: UNK
     Route: 048
     Dates: start: 20110224
  10. LOXOPROFEN [Concomitant]
     Indication: CANCER PAIN
     Dosage: UNK
     Route: 048
     Dates: end: 20110309
  11. RABEPRAZOLE SODIUM [Concomitant]
     Indication: PROPHYLAXIS
     Dosage: UNK
     Route: 048
     Dates: end: 20110309
  12. SANDOSTATIN [Concomitant]
     Indication: ILEUS
     Dosage: UNK
     Route: 065
     Dates: start: 20110304
  13. MEROPEN                            /01250502/ [Concomitant]
     Indication: DELIRIUM
     Dosage: UNK
     Route: 065
     Dates: start: 20110221, end: 20110228

REACTIONS (4)
  - ILEUS [None]
  - NAUSEA [None]
  - DELIRIUM [None]
  - BACTERIAL INFECTION [None]
